FAERS Safety Report 5704491-5 (Version None)
Quarter: 2008Q2

REPORT INFORMATION
  Report Type: 
  Country: None (occurrence: None)
  Receive Date: 20080414
  Receipt Date: 20080331
  Transmission Date: 20081010
  Serious: Yes (Death, Other)
  Sender: FDA-Public Use
  Company Number: US-TYCO HEALTHCARE/MALLINCKRODT-T200600970

PATIENT

DRUGS (4)
  1. OPTIRAY 300 [Suspect]
     Indication: COMPUTERISED TOMOGRAM THORAX
     Dosage: 125 ML, SINGLE
     Route: 042
     Dates: start: 20060831, end: 20060831
  2. HYDROCODONE BITARTRATE [Concomitant]
     Indication: ABDOMINAL PAIN
     Dosage: 10 MG, PRN
  3. PREVACID [Concomitant]
     Dosage: 30 MG, QD
  4. KEFLEX                             /00145501/ [Concomitant]
     Dosage: 600 MG, TID
     Dates: start: 20060829

REACTIONS (4)
  - AIR EMBOLISM [None]
  - BRADYCARDIA [None]
  - DRUG ADMINISTRATION ERROR [None]
  - RESPIRATORY FAILURE [None]
